FAERS Safety Report 15222889 (Version 4)
Quarter: 2018Q4

REPORT INFORMATION
  Report Type: Spontaneous
  Country: FR (occurrence: FR)
  Receive Date: 20180731
  Receipt Date: 20181023
  Transmission Date: 20190204
  Serious: Yes (Death, Hospitalization)
  Sender: FDA-Public Use
  Company Number: FR-TEVA-2018-FR-933567

PATIENT
  Age: 79 Year
  Sex: Male

DRUGS (5)
  1. LIPTRUZET [Suspect]
     Active Substance: ATORVASTATIN CALCIUM\EZETIMIBE
     Indication: ACUTE CORONARY SYNDROME
     Dosage: 1 DOSAGE FORMS DAILY;
     Route: 048
     Dates: end: 20180623
  2. COVERSYL 5 MG, COMPRIM? PELLICUL? S?CABLE (PERINDOPRIL ARGININE) [Suspect]
     Active Substance: PERINDOPRIL ARGININE
     Indication: ACUTE CORONARY SYNDROME
     Dosage: 2 DOSAGE FORMS DAILY; SCORED
     Route: 048
     Dates: end: 20180623
  3. PRADAXA [Suspect]
     Active Substance: DABIGATRAN ETEXILATE MESYLATE
     Indication: ACUTE CORONARY SYNDROME
  4. PRADAXA [Suspect]
     Active Substance: DABIGATRAN ETEXILATE MESYLATE
     Indication: PRODUCT USED FOR UNKNOWN INDICATION
     Dosage: 110 MILLIGRAM DAILY;
     Route: 048
     Dates: start: 20180409, end: 20180623
  5. SOTALOL. [Suspect]
     Active Substance: SOTALOL
     Indication: ACUTE CORONARY SYNDROME
     Dosage: 1 DOSAGE FORMS DAILY;
     Route: 048
     Dates: end: 20180623

REACTIONS (1)
  - Cerebral haemorrhage [Fatal]

NARRATIVE: CASE EVENT DATE: 20180623
